FAERS Safety Report 5644793-4 (Version None)
Quarter: 2008Q1

REPORT INFORMATION
  Report Type: 
  Country: None (occurrence: None)
  Receive Date: 20080229
  Receipt Date: 20070820
  Transmission Date: 20080703
  Serious: No
  Sender: FDA-Public Use
  Company Number: A0668395A

PATIENT
  Age: 48 Year
  Sex: Female

DRUGS (10)
  1. VALTREX [Suspect]
     Indication: DRUG USE FOR UNKNOWN INDICATION
     Dosage: 1G TWICE PER DAY
     Route: 048
     Dates: start: 20070628, end: 20070701
  2. AMITRIPTYLINE HCL [Concomitant]
  3. EFFEXOR [Concomitant]
  4. SUBOXONE [Concomitant]
  5. CEFTRIAXONE [Concomitant]
     Dates: end: 20070701
  6. HYDROXYZINE [Concomitant]
  7. LEVAQUIN [Concomitant]
  8. IBUPROFEN [Concomitant]
  9. FLEXERIL [Concomitant]
  10. PREDNISONE TAB [Concomitant]

REACTIONS (1)
  - BLOOD CREATININE INCREASED [None]
